FAERS Safety Report 5222537-8 (Version None)
Quarter: 2007Q1

REPORT INFORMATION
  Report Type: 
  Country: None (occurrence: None)
  Receive Date: 20070129
  Receipt Date: 20070112
  Transmission Date: 20070707
  Serious: Yes (Death, Hospitalization)
  Sender: FDA-Public Use
  Company Number: FR-BRISTOL-MYERS SQUIBB COMPANY-13648274

PATIENT
  Age: 65 Year
  Sex: Female

DRUGS (1)
  1. APROVEL TABS 300 MG [Suspect]
     Indication: HYPERTENSIVE NEPHROPATHY
     Route: 048
     Dates: start: 20040901, end: 20060703

REACTIONS (5)
  - INFECTION [None]
  - INTRAVASCULAR HAEMOLYSIS [None]
  - MESENTERIC OCCLUSION [None]
  - PANCREATITIS ACUTE [None]
  - SEPTIC SHOCK [None]
